FAERS Safety Report 4684265-7 (Version None)
Quarter: 2005Q2

REPORT INFORMATION
  Report Type: 
  Country: None (occurrence: None)
  Receive Date: 20050531
  Receipt Date: 20050404
  Transmission Date: 20051028
  Serious: Yes (Hospitalization)
  Sender: FDA-Public Use
  Company Number: US_0411107712

PATIENT
  Age: 53 Year
  Sex: Male
  Weight: 109 kg

DRUGS (3)
  1. ZYPREXA [Suspect]
     Dosage: 10 MG/1 DAY
     Dates: start: 20000519, end: 20030303
  2. PAXIL [Concomitant]
  3. EFFEXOR [Concomitant]

REACTIONS (2)
  - DIABETES MELLITUS [None]
  - PANCREATITIS [None]
